FAERS Safety Report 9182628 (Version 1)
Quarter: 2013Q1

REPORT INFORMATION
  Report Type: Spontaneous
  Country: US (occurrence: US)
  Receive Date: 20130322
  Receipt Date: 20130322
  Transmission Date: 20140127
  Serious: No
  Sender: FDA-Public Use
  Company Number: US-BRISTOL-MYERS SQUIBB COMPANY-16857104

PATIENT
  Age: 59 Year
  Sex: Male
  Weight: 56.69 kg

DRUGS (2)
  1. ERBITUX [Suspect]
     Indication: SMALL INTESTINE CARCINOMA
     Dosage: LAST RECEIVED IN AUG2012,TOTAL DOSE:680MG, NOW 428 UNITS NOS
     Dates: start: 20120710
  2. IRINOTECAN [Concomitant]

REACTIONS (2)
  - Rash pustular [Unknown]
  - Dry skin [Unknown]
